FAERS Safety Report 10428541 (Version 1)
Quarter: 2014Q3

REPORT INFORMATION
  Report Type: Spontaneous
  Country: NL (occurrence: None)
  Receive Date: 20140829
  Receipt Date: 20140829
  Transmission Date: 20150326
  Serious: Yes (Death)
  Sender: FDA-Public Use
  Company Number: CLINIGEN-003428

PATIENT
  Age: 61 Year
  Sex: Male
  Weight: 75 kg

DRUGS (15)
  1. PANTOPRAZOLE [Concomitant]
     Active Substance: PANTOPRAZOLE SODIUM
  2. CALCIUM GLUCONATE. [Concomitant]
     Active Substance: CALCIUM GLUCONATE
  3. OXYCODON [Concomitant]
     Active Substance: OXYCODONE
  4. ITRACONAZOL [Concomitant]
     Active Substance: ITRACONAZOLE
  5. COTRIMOXAZOL [Concomitant]
  6. CIPROFLOXACINE [Concomitant]
     Active Substance: CIPROFLOXACIN
  7. PREDNISOLON [Concomitant]
     Active Substance: PREDNISOLONE
  8. PHOSPHATE [Concomitant]
     Active Substance: UNSPECIFIED INGREDIENT
  9. POTASSIUM CHLORIDE. [Concomitant]
     Active Substance: POTASSIUM CHLORIDE
  10. TRANEXAMIC ACID. [Concomitant]
     Active Substance: TRANEXAMIC ACID
  11. CICLOSPORINE [Concomitant]
     Active Substance: CYCLOSPORINE
  12. MAGNESIUM SULPHATE [Concomitant]
     Active Substance: MAGNESIUM SULFATE
  13. CELLCEPT [Concomitant]
     Active Substance: MYCOPHENOLATE MOFETIL\MYCOPHENOLATE MOFETIL HYDROCHLORIDE
  14. FOSCARNET [Suspect]
     Active Substance: FOSCARNET
     Indication: CYTOMEGALOVIRUS COLITIS
     Dates: start: 20140722
  15. ATG-FRESENIUS [Concomitant]
     Active Substance: LAPINE T-LYMPHOCYTE IMMUNE GLOBULIN

REACTIONS (2)
  - Status epilepticus [None]
  - Respiratory failure [None]

NARRATIVE: CASE EVENT DATE: 20140727
